FAERS Safety Report 6910457-X (Version None)
Quarter: 2010Q3

REPORT INFORMATION
  Report Type: 
  Country: None (occurrence: None)
  Receive Date: 20100806
  Receipt Date: 20100723
  Transmission Date: 20110219
  Serious: Yes (Disabling)
  Sender: FDA-Public Use
  Company Number: DK-JNJCH-2010017917

PATIENT
  Sex: Female

DRUGS (2)
  1. ZYRTEC [Suspect]
     Indication: PRODUCT USED FOR UNKNOWN INDICATION
     Dosage: TEXT:10 MG
     Route: 048
  2. CENTYL MED KALIUMKLORID [Suspect]
     Indication: PRODUCT USED FOR UNKNOWN INDICATION
     Dosage: TEXT:2.5+573 MG
     Route: 048
     Dates: start: 20020822, end: 20020826

REACTIONS (1)
  - DERMATITIS EXFOLIATIVE [None]
